FAERS Safety Report 12278888 (Version 2)
Quarter: 2016Q3

REPORT INFORMATION
  Report Type: Spontaneous
  Country: CA (occurrence: CA)
  Receive Date: 20160418
  Receipt Date: 20160902
  Transmission Date: 20161109
  Serious: Yes (Hospitalization)
  Sender: FDA-Public Use
  Company Number: CA-ROCHE-1741961

PATIENT
  Age: 48 Year
  Sex: Female

DRUGS (23)
  1. PERJETA [Suspect]
     Active Substance: PERTUZUMAB
     Indication: HER-2 POSITIVE BREAST CANCER
     Route: 042
  2. DOCETAXEL. [Suspect]
     Active Substance: DOCETAXEL
     Indication: HER-2 POSITIVE BREAST CANCER
     Route: 042
  3. CARBOPLATIN. [Suspect]
     Active Substance: CARBOPLATIN
     Route: 042
  4. DOCETAXEL. [Suspect]
     Active Substance: DOCETAXEL
     Route: 042
  5. EMEND [Concomitant]
     Active Substance: APREPITANT
     Route: 065
  6. CARBOPLATIN. [Suspect]
     Active Substance: CARBOPLATIN
     Indication: HER-2 POSITIVE BREAST CANCER
     Route: 042
  7. HYDROCORTISONE. [Concomitant]
     Active Substance: HYDROCORTISONE
  8. TAZOCIN [Concomitant]
     Active Substance: PIPERACILLIN SODIUM\TAZOBACTAM SODIUM
     Route: 042
  9. TYLENOL [Concomitant]
     Active Substance: ACETAMINOPHEN
  10. ZANTAC [Concomitant]
     Active Substance: RANITIDINE HYDROCHLORIDE
  11. HERCEPTIN [Suspect]
     Active Substance: TRASTUZUMAB
     Indication: HER-2 POSITIVE BREAST CANCER
     Route: 042
  12. METOCLOPRAMIDE. [Concomitant]
     Active Substance: METOCLOPRAMIDE
  13. LOPERAMIDE [Concomitant]
     Active Substance: LOPERAMIDE
  14. ONDANSETRON [Concomitant]
     Active Substance: ONDANSETRON
  15. HERCEPTIN [Suspect]
     Active Substance: TRASTUZUMAB
     Route: 042
  16. NEULASTA [Concomitant]
     Active Substance: PEGFILGRASTIM
     Route: 058
  17. RANITIDINE. [Concomitant]
     Active Substance: RANITIDINE
  18. DEXAMETHASONE. [Concomitant]
     Active Substance: DEXAMETHASONE
     Route: 065
  19. OMEPRAZOLE. [Concomitant]
     Active Substance: OMEPRAZOLE
  20. PERJETA [Suspect]
     Active Substance: PERTUZUMAB
     Route: 042
  21. CITALOPRAM [Concomitant]
     Active Substance: CITALOPRAM HYDROBROMIDE
  22. MORPHINE [Concomitant]
     Active Substance: MORPHINE
  23. ERGOCALCIFEROL. [Concomitant]
     Active Substance: ERGOCALCIFEROL

REACTIONS (2)
  - Pneumonia [Unknown]
  - Pulmonary embolism [Unknown]
